FAERS Safety Report 13761143 (Version 3)
Quarter: 2017Q3

REPORT INFORMATION
  Report Type: Spontaneous
  Country: US (occurrence: US)
  Receive Date: 20170717
  Receipt Date: 20170807
  Transmission Date: 20171127
  Serious: No
  Sender: FDA-Public Use
  Company Number: US-SUNOVION-2017SUN003068

PATIENT

DRUGS (3)
  1. LATUDA [Suspect]
     Active Substance: LURASIDONE HYDROCHLORIDE
     Dosage: UNK
     Route: 048
     Dates: start: 201508
  2. WELLBUTRIN [Concomitant]
     Active Substance: BUPROPION HYDROCHLORIDE
     Dosage: 300 MG, QD
  3. GEODON [Concomitant]
     Active Substance: ZIPRASIDONE HYDROCHLORIDE\ZIPRASIDONE MESYLATE
     Dosage: 80 MG, UNK

REACTIONS (6)
  - Soliloquy [Recovering/Resolving]
  - Anger [Not Recovered/Not Resolved]
  - Weight increased [Recovering/Resolving]
  - Tachyphrenia [Not Recovered/Not Resolved]
  - Body mass index increased [Unknown]
  - Post-traumatic stress disorder [Not Recovered/Not Resolved]
